FAERS Safety Report 17846772 (Version 1)
Quarter: 2020Q2

REPORT INFORMATION
  Report Type: Spontaneous
  Country: ES (occurrence: ES)
  Receive Date: 20200601
  Receipt Date: 20200601
  Transmission Date: 20200714
  Serious: Yes (Other)
  Sender: FDA-Public Use
  Company Number: ES-TEVA-2020-ES-1241463

PATIENT
  Age: 56 Year
  Sex: Male

DRUGS (2)
  1. AZITROMICINA (7019A) [Suspect]
     Active Substance: AZITHROMYCIN
     Indication: COVID-19 PNEUMONIA
     Dosage: 500 MILLIGRAM
     Route: 048
     Dates: start: 20200323, end: 20200329
  2. HIDROXICLOROQUINA 200 MG COMPRIMIDO [Interacting]
     Active Substance: HYDROXYCHLOROQUINE
     Indication: COVID-19 PNEUMONIA
     Dosage: 200 MILLIGRAM
     Dates: start: 20200323, end: 20200331

REACTIONS (3)
  - Drug interaction [Unknown]
  - Long QT syndrome [Recovering/Resolving]
  - Hypertransaminasaemia [Recovering/Resolving]

NARRATIVE: CASE EVENT DATE: 20200330
